FAERS Safety Report 6149763-8 (Version None)
Quarter: 2009Q2

REPORT INFORMATION
  Report Type: 
  Country: None (occurrence: None)
  Receive Date: 20090407
  Receipt Date: 20090407
  Transmission Date: 20091009
  Serious: Yes (Hospitalization)
  Sender: FDA-Public Use
  Company Number: None

PATIENT
  Age: 79 Year
  Sex: Female

DRUGS (1)
  1. CETACAINE SPRAY [Suspect]
     Indication: OROPHARYNGEAL PAIN
     Dosage: PO
     Route: 048
     Dates: start: 20090104, end: 20090111

REACTIONS (1)
  - METHAEMOGLOBINAEMIA [None]
